FAERS Safety Report 11046725 (Version 2)
Quarter: 2015Q2

REPORT INFORMATION
  Report Type: Spontaneous
  Country: US (occurrence: None)
  Receive Date: 20150416
  Receipt Date: 20150429
  Transmission Date: 20150821
  Serious: Yes (Death)
  Sender: FDA-Public Use
  Company Number: 2822565

PATIENT
  Age: 74 Year
  Sex: Male
  Weight: 49.44 kg

DRUGS (3)
  1. ONDANSETRON [Suspect]
     Active Substance: ONDANSETRON
     Indication: NAUSEA
     Dosage: 4 MG MILLIGRAMS, 1 HOUR, INTRAVENOUS BOLUS
     Route: 040
     Dates: start: 20150328
  2. LEVAQUIN [Suspect]
     Active Substance: LEVOFLOXACIN
     Indication: PNEUMONIA
     Dosage: 750 MG MILLIGRAM(S), 1 HOUR, INTRAVENOUS (NOT OTHERWISE SPECIFIED)?
     Route: 042
     Dates: start: 20150327
  3. MIRTAZAPINE. [Concomitant]
     Active Substance: MIRTAZAPINE

REACTIONS (2)
  - Death [None]
  - Unresponsive to stimuli [None]

NARRATIVE: CASE EVENT DATE: 20150328
